FAERS Safety Report 12585746 (Version 2)
Quarter: 2016Q3

REPORT INFORMATION
  Report Type: Spontaneous
  Country: BR (occurrence: BR)
  Receive Date: 20160725
  Receipt Date: 20160801
  Transmission Date: 20161109
  Serious: Yes (Death)
  Sender: FDA-Public Use
  Company Number: BR-ROCHE-1800410

PATIENT
  Sex: Female

DRUGS (1)
  1. RIVOTRIL [Suspect]
     Active Substance: CLONAZEPAM
     Indication: MENOPAUSE
     Route: 065

REACTIONS (2)
  - Neoplasm [Fatal]
  - Off label use [Fatal]
